FAERS Safety Report 23591133 (Version 1)
Quarter: 2024Q1

REPORT INFORMATION
  Report Type: Spontaneous
  Country: US (occurrence: None)
  Receive Date: 20240229
  Receipt Date: 20240229
  Transmission Date: 20240410
  Serious: Yes (Hospitalization)
  Sender: FDA-Public Use
  Company Number: None

PATIENT
  Age: 75 Year
  Sex: Male
  Weight: 103.87 kg

DRUGS (1)
  1. LENVATINIB [Suspect]
     Active Substance: LENVATINIB
     Indication: Hepatocellular carcinoma
     Dosage: FREQUENCY : DAILY;?
     Route: 048
     Dates: start: 20240221, end: 20240228

REACTIONS (8)
  - Dyspnoea [None]
  - Cough [None]
  - Abdominal pain upper [None]
  - Fatigue [None]
  - Decreased appetite [None]
  - Epistaxis [None]
  - Chills [None]
  - Night sweats [None]

NARRATIVE: CASE EVENT DATE: 20240228
